FAERS Safety Report 7423926-3 (Version None)
Quarter: 2011Q2

REPORT INFORMATION
  Report Type: 
  Country: None (occurrence: None)
  Receive Date: 20110419
  Receipt Date: 20110412
  Transmission Date: 20111010
  Serious: Yes (Death, Hospitalization)
  Sender: FDA-Public Use
  Company Number: A0903031A

PATIENT
  Age: 63 Year
  Sex: Male
  Weight: 196.8 kg

DRUGS (1)
  1. AVANDIA [Suspect]
     Indication: DIABETES MELLITUS
     Dosage: 8MG PER DAY
     Route: 048
     Dates: start: 20051017, end: 20090102

REACTIONS (2)
  - CARDIOVASCULAR DISORDER [None]
  - CARDIAC ARREST [None]
